FAERS Safety Report 22278944 (Version 2)
Quarter: 2023Q2

REPORT INFORMATION
  Report Type: Spontaneous
  Country: US (occurrence: US)
  Receive Date: 20230503
  Receipt Date: 20230622
  Transmission Date: 20230721
  Serious: Yes (Other)
  Sender: FDA-Public Use
  Company Number: US-PFIZER INC-202300172949

PATIENT
  Age: 60 Year
  Sex: Female

DRUGS (1)
  1. SOMAVERT [Suspect]
     Active Substance: PEGVISOMANT
     Dosage: 30 MG, 2X/WEEK (INJECT 30 MG UNDER THE SKIN TWICE A WEEK)
     Route: 058

REACTIONS (5)
  - Hyperthyroidism [Unknown]
  - Insulin-like growth factor abnormal [Recovering/Resolving]
  - Fatigue [Unknown]
  - Headache [Unknown]
  - Off label use [Unknown]
